FAERS Safety Report 16766871 (Version 5)
Quarter: 2020Q1

REPORT INFORMATION
  Report Type: Spontaneous
  Country: US (occurrence: US)
  Receive Date: 20190903
  Receipt Date: 20200210
  Transmission Date: 20200409
  Serious: No
  Sender: FDA-Public Use
  Company Number: US-PFIZER INC-2019313367

PATIENT
  Age: 44 Year
  Sex: Female

DRUGS (1)
  1. LYRICA [Suspect]
     Active Substance: PREGABALIN
     Indication: SLEEP DISORDER
     Dosage: 75 MG, DAILY
     Route: 048

REACTIONS (5)
  - Product use in unapproved indication [Unknown]
  - Product dose omission [Unknown]
  - Off label use [Unknown]
  - Drug effective for unapproved indication [Unknown]
  - Fatigue [Unknown]
